FAERS Safety Report 6254210-1 (Version None)
Quarter: 2009Q3

REPORT INFORMATION
  Report Type: 
  Country: None (occurrence: None)
  Receive Date: 20090701
  Receipt Date: 20090701
  Transmission Date: 20100115
  Serious: Yes (Other)
  Sender: FDA-Public Use
  Company Number: None

PATIENT
  Age: 52 Year
  Sex: Male
  Weight: 78.0187 kg

DRUGS (1)
  1. METOPROLOL TARTRATE [Suspect]
     Indication: CHEST PAIN
     Dosage: 25 MG 2 X A DAY PO
     Route: 048
     Dates: start: 20090614, end: 20090627

REACTIONS (2)
  - CHEST PAIN [None]
  - PRODUCT SUBSTITUTION ISSUE [None]
